FAERS Safety Report 7272215-9 (Version None)
Quarter: 2011Q1

REPORT INFORMATION
  Report Type: 
  Country: None (occurrence: None)
  Receive Date: 20110203
  Receipt Date: 20110121
  Transmission Date: 20110831
  Serious: Yes (Hospitalization, Other)
  Sender: FDA-Public Use
  Company Number: PHHY2010US60171

PATIENT
  Sex: Female
  Weight: 95 kg

DRUGS (14)
  1. BISACODYL [Concomitant]
     Dosage: 5 MG
  2. DOXYCYCLINE HYCLATE [Concomitant]
     Dosage: 100 MG
  3. OXYCONTIN [Concomitant]
     Dosage: 10 MG
  4. ZOFRAN [Concomitant]
  5. RECLAST [Suspect]
     Indication: OSTEOPOROSIS
     Dosage: 5MG YEARLY
     Route: 042
     Dates: start: 20100801
  6. ZANAFLEX [Concomitant]
     Dosage: 4 MG
  7. LORAZEPAM [Concomitant]
     Dosage: 1 MG
  8. TRAZODONE HCL [Concomitant]
     Dosage: 50 MG
  9. DOCUSATE SODIUM [Concomitant]
     Dosage: 100 MG
     Route: 048
  10. KENALOG [Concomitant]
     Dosage: 40MG/ML
  11. DIPHENHYDRAMINE [Concomitant]
     Dosage: 50 MG
     Route: 048
  12. ACETAMINOPHEN AND OXYCODONE HCL [Concomitant]
     Dosage: 5MG-325MG
  13. ENBREL [Concomitant]
     Dosage: 50MG/ML
  14. FELDENE [Concomitant]
     Dosage: 20 MG

REACTIONS (14)
  - ARTHRALGIA [None]
  - VOMITING [None]
  - PAIN IN EXTREMITY [None]
  - MUSCLE SPASMS [None]
  - MYALGIA [None]
  - PYREXIA [None]
  - PALPITATIONS [None]
  - RHEUMATOID ARTHRITIS [None]
  - JOINT SWELLING [None]
  - ASTHENIA [None]
  - HYPOKINESIA [None]
  - NAUSEA [None]
  - PAIN [None]
  - MUSCULOSKELETAL PAIN [None]
